FAERS Safety Report 7723922-2 (Version None)
Quarter: 2011Q3

REPORT INFORMATION
  Report Type: 
  Country: None (occurrence: None)
  Receive Date: 20110901
  Receipt Date: 20110819
  Transmission Date: 20111222
  Serious: Yes (Hospitalization, Other)
  Sender: FDA-Public Use
  Company Number: US-ELI_LILLY_AND_COMPANY-US201008008323

PATIENT
  Sex: Female

DRUGS (25)
  1. ATARAX [Concomitant]
     Dosage: UNK, QD
  2. NEXIUM [Concomitant]
     Dosage: UNK, QD
  3. FORTEO [Suspect]
     Indication: OSTEOPOROSIS
     Dosage: 20 UG, DAILY (1/D)
     Dates: start: 20100820
  4. FORTEO [Suspect]
     Dosage: 20 UG, DAILY (1/D)
  5. FORTEO [Suspect]
     Dosage: 20 UG, QD
  6. LUNESTA [Concomitant]
     Dosage: UNK, QD
  7. SYNTHROID [Concomitant]
     Dosage: UNK, QD
  8. VICODIN [Concomitant]
     Dosage: UNK, QOD
  9. PREMARIN [Concomitant]
     Dosage: UNK, QD
  10. NASONEX [Concomitant]
     Dosage: UNK, QD
  11. PHENERGAN HCL [Concomitant]
     Dosage: UNK, QD
  12. ZANAFLEX [Concomitant]
     Dosage: UNK, QD
  13. AMITIZA [Concomitant]
     Dosage: 24 MG, BID
  14. CALCIUM CARBONATE [Concomitant]
     Dosage: UNK, QD
  15. PREMARIN [Concomitant]
     Dosage: UNK, QD
  16. TOPAMAX [Concomitant]
     Dosage: UNK, QD
  17. FORTEO [Suspect]
     Dosage: 20 UG, QD
  18. CYMBALTA [Suspect]
     Dosage: 30 MG, PRN
  19. DOXEPIN [Concomitant]
     Dosage: UNK, QD
  20. MACRODANTIN [Concomitant]
     Dosage: UNK, QD
  21. FIORICET [Concomitant]
     Dosage: UNK, QD
  22. CYMBALTA [Concomitant]
     Dosage: 30 MG, PRN
  23. PEPCID AC [Concomitant]
     Dosage: UNK, QD
  24. LACTAID [Concomitant]
     Indication: LACTOSE INTOLERANCE
     Dosage: UNK, PRN
  25. POTASSIUM [Concomitant]
     Dosage: UNK, QD

REACTIONS (15)
  - CHEST PAIN [None]
  - BLOOD POTASSIUM ABNORMAL [None]
  - MALAISE [None]
  - INJECTION SITE HAEMORRHAGE [None]
  - INJECTION SITE HAEMATOMA [None]
  - VOMITING [None]
  - DRY MOUTH [None]
  - DEHYDRATION [None]
  - BLISTER [None]
  - ERYTHEMA [None]
  - SWELLING [None]
  - NAUSEA [None]
  - TRANSIENT ISCHAEMIC ATTACK [None]
  - JAW DISORDER [None]
  - MIGRAINE [None]
